FAERS Safety Report 6486358-0 (Version None)
Quarter: 2009Q4

REPORT INFORMATION
  Report Type: 
  Country: None (occurrence: None)
  Receive Date: 20091207
  Receipt Date: 20091127
  Transmission Date: 20100525
  Serious: Yes (Disabling, Other)
  Sender: FDA-Public Use
  Company Number: SPV1-2009-02228

PATIENT
  Age: 14 Year
  Sex: Male
  Weight: 65.8 kg

DRUGS (7)
  1. VYVANSE [Suspect]
     Indication: ATTENTION DEFICIT/HYPERACTIVITY DISORDER
     Dosage: SEE IMAGE
     Route: 048
     Dates: start: 20090101, end: 20090101
  2. VYVANSE [Suspect]
     Indication: ATTENTION DEFICIT/HYPERACTIVITY DISORDER
     Dosage: SEE IMAGE
     Route: 048
     Dates: start: 20090101, end: 20090101
  3. VYVANSE [Suspect]
     Indication: ATTENTION DEFICIT/HYPERACTIVITY DISORDER
     Dosage: SEE IMAGE
     Route: 048
     Dates: start: 20090721, end: 20090101
  4. VYVANSE [Suspect]
     Indication: ATTENTION DEFICIT/HYPERACTIVITY DISORDER
     Dosage: SEE IMAGE
     Route: 048
     Dates: start: 20090101, end: 20091101
  5. VYVANSE [Suspect]
     Indication: ATTENTION DEFICIT/HYPERACTIVITY DISORDER
     Dosage: SEE IMAGE
     Route: 048
     Dates: start: 20091101, end: 20091101
  6. SOLODYN [Suspect]
     Dates: start: 20090918, end: 20090923
  7. DORYX           /00055701/(DOXYCYCLINE) [Concomitant]

REACTIONS (6)
  - ANGIOEDEMA [None]
  - AUTOIMMUNE DISORDER [None]
  - ERYTHEMA MULTIFORME [None]
  - NO THERAPEUTIC RESPONSE [None]
  - OFF LABEL USE [None]
  - URTICARIA [None]
